FAERS Safety Report 6762820-8 (Version None)
Quarter: 2010Q2

REPORT INFORMATION
  Report Type: 
  Country: None (occurrence: None)
  Receive Date: 20100609
  Receipt Date: 20100601
  Transmission Date: 20101027
  Serious: Yes (Hospitalization)
  Sender: FDA-Public Use
  Company Number: US-GENENTECH-302674

PATIENT
  Sex: Female

DRUGS (1)
  1. RITUXAN [Suspect]
     Indication: DERMATOMYOSITIS
     Dosage: 750 UNK, Q14D

REACTIONS (2)
  - AMMONIA [None]
  - PNEUMOCYSTIS JIROVECI INFECTION [None]
